FAERS Safety Report 8600520-X (Version None)
Quarter: 2012Q3

REPORT INFORMATION
  Report Type: 
  Country: None (occurrence: None)
  Receive Date: 20120808
  Receipt Date: 20120808
  Transmission Date: 20120928
  Serious: Yes (Other)
  Sender: FDA-Public Use
  Company Number: None

PATIENT
  Sex: Female
  Weight: 52.1637 kg

DRUGS (1)
  1. THYROID TAB [Suspect]
     Indication: HYPOTHYROIDISM
     Dosage: 60MG ONCE PER DAY SWALLOW
     Dates: start: 20120507, end: 20120513

REACTIONS (3)
  - ABNORMAL SENSATION IN EYE [None]
  - GLAUCOMA [None]
  - METAMORPHOPSIA [None]
